FAERS Safety Report 17136553 (Version 1)
Quarter: 2019Q4

REPORT INFORMATION
  Report Type: Spontaneous
  Country: US (occurrence: US)
  Receive Date: 20191210
  Receipt Date: 20191210
  Transmission Date: 20200122
  Serious: No
  Sender: FDA-Public Use
  Company Number: US-SA-2019SA340283

PATIENT
  Age: 22 Year
  Sex: Female

DRUGS (1)
  1. DUPIXENT [Suspect]
     Active Substance: DUPILUMAB
     Indication: DERMATITIS ATOPIC
     Dosage: UNK
     Dates: start: 201909

REACTIONS (6)
  - Pyrexia [Unknown]
  - Dermatitis atopic [Unknown]
  - Periorbital swelling [Unknown]
  - Skin exfoliation [Unknown]
  - Oropharyngeal pain [Unknown]
  - Therapeutic response decreased [Unknown]
